FAERS Safety Report 7715516-X (Version None)
Quarter: 2011Q3

REPORT INFORMATION
  Report Type: 
  Country: None (occurrence: None)
  Receive Date: 20110829
  Receipt Date: 20110817
  Transmission Date: 20111222
  Serious: Yes (Congenital Anomaly)
  Sender: FDA-Public Use
  Company Number: GB-UCBSA-037631

PATIENT

DRUGS (1)
  1. LEVETIRACETAM [Suspect]
     Route: 064

REACTIONS (6)
  - PREMATURE BABY [None]
  - MATERNAL EXPOSURE DURING PREGNANCY [None]
  - PERIVENTRICULAR LEUKOMALACIA [None]
  - INTRAVENTRICULAR HAEMORRHAGE [None]
  - JAUNDICE [None]
  - HYDROCELE [None]
